FAERS Safety Report 11419149 (Version 1)
Quarter: 2015Q3

REPORT INFORMATION
  Report Type: Spontaneous
  Country: US (occurrence: None)
  Receive Date: 20150824
  Receipt Date: 20150824
  Transmission Date: 20151125
  Serious: Yes (Other)
  Sender: FDA-Public Use
  Company Number: ADR-2015-01300

PATIENT
  Age: 10 Year
  Sex: Female

DRUGS (10)
  1. LIORESAL [Suspect]
     Active Substance: BACLOFEN
     Indication: MUSCLE SPASTICITY
  2. VALIUM [Suspect]
     Active Substance: DIAZEPAM
  3. FLEET NOS [Suspect]
     Active Substance: BISACODYL OR GLYCERIN OR MINERAL OIL OR SODIUM PHOSPHATE, DIBASIC\SODIUM PHOSPHATE, MONOBASIC
     Route: 054
  4. HYDROCORTISONE SODIUM SUCCINATE [Suspect]
     Active Substance: HYDROCORTISONE SODIUM SUCCINATE
     Dosage: 100 MG/2ML (INJECT 1 ML INTRAMUSCULARLY AS NEEDED AND 50 MG AS NEEDED FOR EMERGENCY)
     Route: 030
  5. LIDOCAINE. [Suspect]
     Active Substance: LIDOCAINE
     Route: 061
  6. ARTANE [Suspect]
     Active Substance: TRIHEXYPHENIDYL HYDROCHLORIDE
     Dosage: (1 MG IN THE MORNING AND 1 MG IN THE EVENING PER MOM)
  7. PREVACID [Suspect]
     Active Substance: LANSOPRAZOLE
     Dosage: 15 MG DISINTEGRATING TABLET (1 TAB BY MOUTH ONCE DAILY)
     Route: 048
  8. CORTEF [Suspect]
     Active Substance: HYDROCORTISONE
     Dosage: 5 MG TABLET (1 TAB BY MOUTH TWICE DAILY AND DISPENSE 20 EXTRA EACH MONTH FOR ILLNESS)
     Route: 048
  9. ORAL BACLOFEN [Suspect]
     Active Substance: BACLOFEN
     Dosage: SUPPLY AT HOME.
  10. MILK OF MAGNESIA [Suspect]
     Active Substance: MAGNESIUM HYDROXIDE
     Route: 048

REACTIONS (8)
  - Muscle spasticity [None]
  - Device power source issue [None]
  - Pruritus [None]
  - Muscle tightness [None]
  - Drug withdrawal syndrome [None]
  - Posturing [None]
  - Device battery issue [None]
  - Device malfunction [None]

NARRATIVE: CASE EVENT DATE: 20150703
